FAERS Safety Report 21575674 (Version 1)
Quarter: 2022Q4

REPORT INFORMATION
  Report Type: Spontaneous
  Country: TR (occurrence: TR)
  Receive Date: 20221110
  Receipt Date: 20221110
  Transmission Date: 20230112
  Serious: Yes (Hospitalization, Other)
  Sender: FDA-Public Use
  Company Number: TR-SUN PHARMACEUTICAL INDUSTRIES LTD-2022R1-362923

PATIENT
  Age: 22 Year
  Sex: Male

DRUGS (2)
  1. METHYLPHENIDATE [Suspect]
     Active Substance: METHYLPHENIDATE
     Indication: Intentional product misuse
     Dosage: UNK (150-200 MG PER DAY)
     Route: 045
  2. METHYLPHENIDATE [Suspect]
     Active Substance: METHYLPHENIDATE
     Indication: Intentional product misuse
     Dosage: UNK
     Route: 045

REACTIONS (3)
  - Drug abuse [Unknown]
  - Anhedonia [Unknown]
  - Anxiety [Unknown]
